FAERS Safety Report 9246570 (Version 1)
Quarter: 2013Q2

REPORT INFORMATION
  Report Type: Spontaneous
  Country: US (occurrence: US)
  Receive Date: 20130422
  Receipt Date: 20130422
  Transmission Date: 20140414
  Serious: No
  Sender: FDA-Public Use
  Company Number: US-ABBOTT-13P-163-1063679-00

PATIENT
  Age: 63 Year
  Sex: Male

DRUGS (2)
  1. LUPRON DEPOT-PED [Suspect]
     Indication: PRODUCT USED FOR UNKNOWN INDICATION
  2. LUPRON DEPOT [Suspect]
     Indication: PROSTATE CANCER

REACTIONS (2)
  - Drug dispensing error [Recovered/Resolved]
  - Drug administration error [Recovered/Resolved]
